FAERS Safety Report 9442829 (Version 5)
Quarter: 2014Q3

REPORT INFORMATION
  Report Type: Spontaneous
  Country: DK (occurrence: DK)
  Receive Date: 20130806
  Receipt Date: 20140929
  Transmission Date: 20150326
  Serious: Yes (Hospitalization, Other)
  Sender: FDA-Public Use
  Company Number: DK-BAYER-2013-091326

PATIENT
  Age: 35 Year
  Sex: Female

DRUGS (2)
  1. LINDYNETTE [Suspect]
     Active Substance: ETHINYL ESTRADIOL\GESTODENE
  2. YASMIN [Suspect]
     Active Substance: DROSPIRENONE\ETHINYL ESTRADIOL
     Indication: CONTRACEPTION
     Dosage: 1 DF, QD
     Route: 048
     Dates: start: 20050530, end: 20121019

REACTIONS (14)
  - Altered state of consciousness [Unknown]
  - Aphasia [Recovered/Resolved]
  - Cognitive disorder [Unknown]
  - Headache [Unknown]
  - Musculoskeletal pain [Unknown]
  - Irritability [None]
  - Coordination abnormal [None]
  - Vomiting [Unknown]
  - Cerebral ischaemia [Unknown]
  - Cerebral thrombosis [Unknown]
  - Syncope [Recovered/Resolved]
  - Convulsion [Unknown]
  - Fatigue [Unknown]
  - Nausea [Unknown]

NARRATIVE: CASE EVENT DATE: 20110623
